FAERS Safety Report 11903701 (Version 1)
Quarter: 2016Q1

REPORT INFORMATION
  Report Type: Report from Study
  Country: US (occurrence: US)
  Receive Date: 20160108
  Receipt Date: 20160108
  Transmission Date: 20160526
  Serious: No
  Sender: FDA-Public Use
  Company Number: US-ABBVIE-15P-163-1491196-00

PATIENT
  Sex: Male

DRUGS (4)
  1. RIBASPHERE [Concomitant]
     Active Substance: RIBAVIRIN
     Indication: HEPATITIS C
  2. LEXAPRO [Concomitant]
     Active Substance: ESCITALOPRAM OXALATE
     Indication: PRODUCT USED FOR UNKNOWN INDICATION
  3. VIEKIRA PAK [Suspect]
     Active Substance: DASABUVIR\OMBITASVIR\PARITAPREVIR\RITONAVIR
     Indication: HEPATITIS C
     Dosage: TAKE 3 TABLETS; 2 PINK AND 1 BEIGE IN THE AM AND 1 TABLET BEIGE IN THE PM
     Route: 048
     Dates: start: 20151001
  4. MILK THISTLE [Concomitant]
     Active Substance: MILK THISTLE
     Indication: PRODUCT USED FOR UNKNOWN INDICATION

REACTIONS (9)
  - Rectal haemorrhage [Unknown]
  - Irritability [Unknown]
  - Epistaxis [Unknown]
  - Headache [Unknown]
  - Gingival recession [Unknown]
  - Dry mouth [Unknown]
  - Gingival pain [Unknown]
  - Haemorrhoids [Unknown]
  - Burning sensation [Unknown]
